FAERS Safety Report 25082708 (Version 2)
Quarter: 2025Q1

REPORT INFORMATION
  Report Type: Spontaneous
  Country: PA (occurrence: PA)
  Receive Date: 20250317
  Receipt Date: 20250321
  Transmission Date: 20250408
  Serious: No
  Sender: SANOFI AVENTIS
  Company Number: PA-SANOFI-02444220

PATIENT
  Age: 76 Year
  Sex: Female

DRUGS (1)
  1. FABRAZYME [Suspect]
     Active Substance: AGALSIDASE BETA
     Indication: Fabry^s disease
     Route: 065
     Dates: start: 20150201, end: 20230927

REACTIONS (1)
  - No adverse event [Unknown]

NARRATIVE: CASE EVENT DATE: 20250303
